FAERS Safety Report 24557908 (Version 1)
Quarter: 2024Q4

REPORT INFORMATION
  Report Type: Spontaneous
  Country: US (occurrence: US)
  Receive Date: 20241028
  Receipt Date: 20241028
  Transmission Date: 20250115
  Serious: Yes (Other)
  Sender: BRACCO
  Company Number: US-BRACCO-2024US06694

PATIENT
  Age: 56 Year
  Sex: Male

DRUGS (1)
  1. POSLUMA [Suspect]
     Active Substance: FLOTUFOLASTAT F-18
     Indication: Positron emission tomogram
     Dosage: 8.5 MCI, SINGLE
     Route: 042
     Dates: start: 20241021, end: 20241021

REACTIONS (1)
  - Haemorrhage urinary tract [Recovered/Resolved]

NARRATIVE: CASE EVENT DATE: 20241021
